FAERS Safety Report 20109693 (Version 1)
Quarter: 2021Q4

REPORT INFORMATION
  Report Type: Spontaneous
  Country: US (occurrence: US)
  Receive Date: 20211124
  Receipt Date: 20211124
  Transmission Date: 20220303
  Serious: No
  Sender: FDA-Public Use
  Company Number: US-BAYER-2021A251965

PATIENT
  Sex: Female

DRUGS (1)
  1. GADAVIST [Suspect]
     Active Substance: GADOBUTROL
     Dosage: 7.5 MG, ONCE

REACTIONS (5)
  - Pallor [None]
  - Nasopharyngitis [None]
  - Dyspnoea [None]
  - Wheezing [None]
  - Blood pressure increased [None]
